FAERS Safety Report 18130257 (Version 1)
Quarter: 2020Q3

REPORT INFORMATION
  Report Type: Spontaneous
  Country: US (occurrence: US)
  Receive Date: 20200810
  Receipt Date: 20200810
  Transmission Date: 20201103
  Serious: Yes (Other)
  Sender: FDA-Public Use
  Company Number: US-GLENMARK PHARMACEUTICALS-2020GMK049003

PATIENT
  Age: 31 Year
  Sex: Female

DRUGS (1)
  1. TRETINOIN. [Suspect]
     Active Substance: TRETINOIN
     Indication: ACNE CYSTIC
     Dosage: UNK, USED CREAM A FEW TIMES WEEKLY (HAD STARTED SIX YEARS PRIOR, AT AGE 25)
     Route: 061

REACTIONS (4)
  - Abortion spontaneous [Unknown]
  - Rash [Unknown]
  - Uveal melanoma [Recovered/Resolved]
  - Exposure during pregnancy [Unknown]
